FAERS Safety Report 5214957-2 (Version None)
Quarter: 2007Q1

REPORT INFORMATION
  Report Type: 
  Country: None (occurrence: None)
  Receive Date: 20070122
  Receipt Date: 20070110
  Transmission Date: 20070707
  Serious: Yes (Other)
  Sender: FDA-Public Use
  Company Number: US-PFIZER INC-2006135634

PATIENT
  Sex: Female
  Weight: 56.7 kg

DRUGS (8)
  1. LYRICA [Suspect]
     Indication: TRIGEMINAL NEURALGIA
  2. REGLAN [Suspect]
     Indication: VOMITING
  3. DIAMOX [Concomitant]
  4. CYTOMEL [Concomitant]
  5. MONTELUKAST [Concomitant]
  6. FORADIL [Concomitant]
  7. FENTANYL TRANSDERMAL SYSTEM [Concomitant]
  8. VITAMIN B-12 [Concomitant]

REACTIONS (16)
  - ABASIA [None]
  - ACTIVITIES OF DAILY LIVING IMPAIRED [None]
  - ANXIETY [None]
  - BURNING SENSATION [None]
  - CONFUSIONAL STATE [None]
  - DELIRIUM [None]
  - MOVEMENT DISORDER [None]
  - MUSCULAR WEAKNESS [None]
  - NAUSEA [None]
  - OVARIAN CYST [None]
  - PAIN IN EXTREMITY [None]
  - PAIN OF SKIN [None]
  - SKIN BURNING SENSATION [None]
  - SPEECH DISORDER [None]
  - TREMOR [None]
  - VOMITING [None]
